FAERS Safety Report 14480976 (Version 1)
Quarter: 2018Q1

REPORT INFORMATION
  Report Type: Spontaneous
  Country: US (occurrence: US)
  Receive Date: 20180201
  Receipt Date: 20180201
  Transmission Date: 20180509
  Serious: Yes (Other)
  Sender: FDA-Public Use
  Company Number: None

PATIENT

DRUGS (2)
  1. WARFARIN [Suspect]
     Active Substance: WARFARIN
  2. PHENYTOIN. [Suspect]
     Active Substance: PHENYTOIN

REACTIONS (6)
  - Dyspnoea [None]
  - International normalised ratio increased [None]
  - Therapy cessation [None]
  - Cerebral haemorrhage [None]
  - Depressed level of consciousness [None]
  - Toxicity to various agents [None]
